FAERS Safety Report 6241624-9 (Version None)
Quarter: 2009Q2

REPORT INFORMATION
  Report Type: 
  Country: None (occurrence: None)
  Receive Date: 20090623
  Receipt Date: 20041220
  Transmission Date: 20091009
  Serious: Yes (Hospitalization)
  Sender: FDA-Public Use
  Company Number: ES-ROCHE-374700

PATIENT
  Sex: Male
  Weight: 67.3 kg

DRUGS (42)
  1. DACLIZUMAB [Suspect]
     Dosage: BASELINE VISIT.
     Route: 042
     Dates: start: 20040211
  2. DACLIZUMAB [Suspect]
     Dosage: WEEK 2 VISIT.
     Route: 042
     Dates: start: 20040225
  3. DACLIZUMAB [Suspect]
     Dosage: WEEK 4 VISIT
     Route: 042
     Dates: start: 20040311
  4. DACLIZUMAB [Suspect]
     Dosage: WEEK 6 VISIT
     Route: 042
     Dates: start: 20040324
  5. DACLIZUMAB [Suspect]
     Dosage: WEEK 8 VISIT.
     Route: 042
     Dates: start: 20040407
  6. MYCOPHENOLATE MOFETIL [Suspect]
     Dosage: DRUG NAME: MYCOFENOLATE MOFETIL
     Route: 048
     Dates: start: 20040211, end: 20040211
  7. MYCOPHENOLATE MOFETIL [Suspect]
     Route: 048
     Dates: start: 20040213
  8. MYCOPHENOLATE MOFETIL [Suspect]
     Route: 048
     Dates: start: 20040618
  9. MYCOPHENOLATE MOFETIL [Suspect]
     Route: 048
     Dates: start: 20040629, end: 20040630
  10. MYCOPHENOLATE MOFETIL [Suspect]
     Route: 048
     Dates: start: 20040706
  11. MYCOPHENOLATE MOFETIL [Suspect]
     Route: 048
     Dates: start: 20040709
  12. MYCOPHENOLATE MOFETIL [Suspect]
     Route: 048
     Dates: start: 20040710
  13. MYCOPHENOLATE MOFETIL [Suspect]
     Route: 048
     Dates: start: 20040715
  14. MYCOPHENOLATE MOFETIL [Suspect]
     Route: 048
     Dates: start: 20040716
  15. MYCOPHENOLATE MOFETIL [Suspect]
     Route: 048
     Dates: start: 20040721
  16. MYCOPHENOLATE MOFETIL [Suspect]
     Route: 048
     Dates: start: 20040722
  17. MYCOPHENOLATE MOFETIL [Suspect]
     Route: 048
     Dates: start: 20040811
  18. MYCOPHENOLATE MOFETIL [Suspect]
     Route: 048
     Dates: start: 20040812
  19. MYCOPHENOLATE MOFETIL [Suspect]
     Route: 048
     Dates: start: 20040907
  20. MYCOPHENOLATE MOFETIL [Suspect]
     Route: 048
     Dates: start: 20040908
  21. MYCOPHENOLATE MOFETIL [Suspect]
     Dosage: DRUG NAME: MYCOFENOLATE MOFETIL FORMULATION: VIAL
     Route: 042
     Dates: start: 20040212, end: 20040212
  22. TACROLIMUS [Suspect]
     Route: 048
     Dates: start: 20040211
  23. TACROLIMUS [Suspect]
     Route: 048
     Dates: start: 20040212, end: 20040721
  24. TACROLIMUS [Suspect]
     Route: 048
     Dates: start: 20040722, end: 20041110
  25. TACROLIMUS [Suspect]
     Route: 048
     Dates: start: 20041111
  26. TACROLIMUS [Suspect]
     Route: 048
     Dates: start: 20050120
  27. TACROLIMUS [Suspect]
     Route: 048
     Dates: start: 20050628
  28. STEROID NOS [Suspect]
     Dosage: DRUG NAME: STEROIDS. FORMULATION: VIAL
     Route: 042
     Dates: start: 20040211
  29. STEROID NOS [Suspect]
     Route: 042
     Dates: start: 20040212
  30. STEROID NOS [Suspect]
     Dosage: DRUG NAME: STEROIDS
     Route: 048
     Dates: start: 20040213
  31. PREDNISONE [Suspect]
     Route: 048
     Dates: start: 20040213
  32. PREDNISONE [Suspect]
     Route: 048
     Dates: start: 20040627
  33. PANTOPRAZOL [Concomitant]
     Route: 048
     Dates: start: 20040223
  34. TRIMETOPRIM / SULFAMETOXAZOLE [Concomitant]
     Route: 048
     Dates: start: 20040213
  35. ATENOLOL [Concomitant]
     Route: 048
     Dates: start: 20040218
  36. AAS [Concomitant]
     Route: 048
     Dates: start: 20040225
  37. LOSARTAN POTASSIUM [Concomitant]
     Route: 048
     Dates: start: 20040311
  38. AMLODIPINO [Concomitant]
     Route: 048
     Dates: start: 20040524
  39. AMOXICILLIN AND CLAVULANATE POTASSIUM [Concomitant]
     Route: 048
     Dates: start: 20040302, end: 20040309
  40. AMOXICILLIN AND CLAVULANATE POTASSIUM [Concomitant]
     Dosage: DRUG NAME: AMOXICILLINE/CLAVULANIC
     Route: 048
     Dates: start: 20040715, end: 20040722
  41. VALGANCICLOVIR HCL [Concomitant]
     Dosage: DRUG NAME: VALGANCYCLOVIR.
     Route: 048
     Dates: start: 20040510, end: 20040629
  42. VALGANCICLOVIR HCL [Concomitant]
     Route: 048
     Dates: start: 20040721, end: 20040907

REACTIONS (1)
  - CYTOMEGALOVIRUS ENTERITIS [None]
